FAERS Safety Report 8346962-1 (Version None)
Quarter: 2012Q2

REPORT INFORMATION
  Report Type: 
  Country: None (occurrence: None)
  Receive Date: 20120509
  Receipt Date: 20120425
  Transmission Date: 20120825
  Serious: Yes (Life-Threatening, Other)
  Sender: FDA-Public Use
  Company Number: CN-SANOFI-AVENTIS-2012SA031683

PATIENT
  Age: 64 Year
  Sex: Male

DRUGS (4)
  1. METFORMIN HYDROCHLORIDE [Suspect]
     Route: 065
  2. HERBAL PREPARATION [Concomitant]
  3. GLYBURIDE [Suspect]
     Route: 065
  4. PHENFORMIN [Suspect]
     Route: 065

REACTIONS (2)
  - HYPOGLYCAEMIA [None]
  - LACTIC ACIDOSIS [None]
